FAERS Safety Report 9675586 (Version 5)
Quarter: 2019Q4

REPORT INFORMATION
  Report Type: Spontaneous
  Country: US (occurrence: US)
  Receive Date: 20131107
  Receipt Date: 20191024
  Transmission Date: 20200122
  Serious: Yes (Other)
  Sender: FDA-Public Use
  Company Number: US-PFIZER INC-2013315708

PATIENT
  Age: 72 Year
  Sex: Female

DRUGS (2)
  1. CALAN SR [Suspect]
     Active Substance: VERAPAMIL HYDROCHLORIDE
     Indication: MIGRAINE
     Dosage: 0.5 DF, 2X/DAY (HALF IN THE MORNING, HALF AT NIGHT)
     Route: 048
  2. CALAN SR [Suspect]
     Active Substance: VERAPAMIL HYDROCHLORIDE
     Indication: ATRIAL FIBRILLATION
     Dosage: 180 MG, 1X/DAY (IN THE MORNING)
     Route: 048

REACTIONS (3)
  - Cardiac valve disease [Unknown]
  - Abdominal discomfort [Unknown]
  - Therapeutic response unexpected [Unknown]
